FAERS Safety Report 12223310 (Version 1)
Quarter: 2016Q1

REPORT INFORMATION
  Report Type: Spontaneous
  Country: IN (occurrence: IN)
  Receive Date: 20160330
  Receipt Date: 20160330
  Transmission Date: 20160526
  Serious: Yes (Death)
  Sender: FDA-Public Use
  Company Number: IN-B.I. PHARMACEUTICALS,INC./RIDGEFIELD-2016-BI-19352BI

PATIENT
  Age: 72 Year
  Sex: Male

DRUGS (4)
  1. VIRAMUNE [Suspect]
     Active Substance: NEVIRAPINE
     Indication: HIV TEST POSITIVE
     Dosage: 200 MG
     Route: 048
  2. ZIDOVUDINE. [Suspect]
     Active Substance: ZIDOVUDINE
     Indication: HIV TEST POSITIVE
     Route: 065
  3. LAMIVUDINE. [Suspect]
     Active Substance: LAMIVUDINE
     Indication: HIV TEST POSITIVE
     Route: 065
  4. VIRAMUNE [Suspect]
     Active Substance: NEVIRAPINE
     Dosage: 400 MG
     Route: 048

REACTIONS (1)
  - Toxic epidermal necrolysis [Fatal]
